FAERS Safety Report 4883519-9 (Version None)
Quarter: 2006Q1

REPORT INFORMATION
  Report Type: 
  Country: None (occurrence: None)
  Receive Date: 20060118
  Receipt Date: 20050831
  Transmission Date: 20060701
  Serious: Yes (Hospitalization)
  Sender: FDA-Public Use
  Company Number: US-MERCK-0509USA00127

PATIENT
  Age: 67 Year
  Sex: Male
  Weight: 85 kg

DRUGS (4)
  1. VIOXX [Suspect]
     Indication: BACK PAIN
     Route: 048
     Dates: start: 20020901, end: 20041001
  2. SERZONE [Concomitant]
     Route: 065
  3. VITAMINS (UNSPECIFIED) [Concomitant]
     Route: 065
  4. CALCIUM (UNSPECIFIED) [Concomitant]
     Route: 065

REACTIONS (5)
  - ACUTE MYOCARDIAL INFARCTION [None]
  - CORONARY ARTERY THROMBOSIS [None]
  - ERECTILE DYSFUNCTION [None]
  - HYPERCHOLESTEROLAEMIA [None]
  - LIBIDO DECREASED [None]
